FAERS Safety Report 5749172-7 (Version None)
Quarter: 2008Q2

REPORT INFORMATION
  Report Type: 
  Country: None (occurrence: None)
  Receive Date: 20080527
  Receipt Date: 20080515
  Transmission Date: 20081010
  Serious: Yes (Other)
  Sender: FDA-Public Use
  Company Number: BR-ROCHE-565136

PATIENT
  Age: 52 Year
  Sex: Female

DRUGS (1)
  1. ACCUTANE [Suspect]
     Indication: SEBACEOUS HYPERPLASIA
     Route: 048
     Dates: start: 19980101, end: 19980101

REACTIONS (5)
  - BLOOD CHOLESTEROL ABNORMAL [None]
  - DEPRESSION [None]
  - HYPOTHYROIDISM [None]
  - OSTEOPOROSIS [None]
  - PATELLOFEMORAL PAIN SYNDROME [None]
